FAERS Safety Report 20644393 (Version 1)
Quarter: 2022Q1

REPORT INFORMATION
  Report Type: Spontaneous
  Country: US (occurrence: US)
  Receive Date: 20220328
  Receipt Date: 20220328
  Transmission Date: 20220423
  Serious: No
  Sender: FDA-Public Use
  Company Number: US-SA-SAC20220321000062

PATIENT
  Age: 22 Year
  Sex: Male

DRUGS (6)
  1. DUPIXENT [Suspect]
     Active Substance: DUPILUMAB
     Indication: Neurodermatitis
     Dosage: 300 MG, QOW
     Route: 058
     Dates: start: 20220310
  2. DUPIXENT [Suspect]
     Active Substance: DUPILUMAB
     Indication: Dermatitis atopic
  3. AVEENO ANTI-ITCH [CALAMINE;PRAMOCAINE HYDROCHLORIDE] [Concomitant]
     Dosage: UNK
  4. PARAFFIN [Concomitant]
     Active Substance: PARAFFIN
     Dosage: UNK
  5. TACROLIMUS [Concomitant]
     Active Substance: TACROLIMUS
     Dosage: UNK
  6. BETAMETHASONE [Concomitant]
     Active Substance: BETAMETHASONE
     Dosage: UNK

REACTIONS (1)
  - Dermatitis atopic [Recovering/Resolving]

NARRATIVE: CASE EVENT DATE: 20220315
